FAERS Safety Report 4883758-7 (Version None)
Quarter: 2006Q1

REPORT INFORMATION
  Report Type: 
  Country: None (occurrence: None)
  Receive Date: 20060118
  Receipt Date: 20031111
  Transmission Date: 20060701
  Serious: Yes (Other)
  Sender: FDA-Public Use
  Company Number: AU-ROCHE-351371

PATIENT
  Age: 39 Year
  Sex: Female
  Weight: 50 kg

DRUGS (1)
  1. ROACCUTANE [Suspect]
     Indication: ACNE
     Route: 048
     Dates: start: 19990615, end: 19990615

REACTIONS (4)
  - ANORECTAL DISORDER [None]
  - DRY EYE [None]
  - NASAL DRYNESS [None]
  - VULVOVAGINAL DRYNESS [None]
